FAERS Safety Report 21121003 (Version 1)
Quarter: 2022Q3

REPORT INFORMATION
  Report Type: Report from Study
  Country: US (occurrence: US)
  Receive Date: 20220722
  Receipt Date: 20220722
  Transmission Date: 20221027
  Serious: Yes (Hospitalization)
  Sender: FDA-Public Use
  Company Number: US-MIRM-000411

PATIENT
  Age: 9 Year
  Sex: Male

DRUGS (1)
  1. LIVMARLI [Suspect]
     Active Substance: MARALIXIBAT CHLORIDE
     Indication: Product used for unknown indication
     Dosage: DOSE AND DATES NOT REPORTED
     Route: 048

REACTIONS (1)
  - Gastrointestinal surgery [Unknown]

NARRATIVE: CASE EVENT DATE: 20220408
